FAERS Safety Report 7310747-5 (Version None)
Quarter: 2011Q1

REPORT INFORMATION
  Report Type: 
  Country: None (occurrence: None)
  Receive Date: 20110224
  Receipt Date: 20110210
  Transmission Date: 20110831
  Serious: Yes (Other)
  Sender: FDA-Public Use
  Company Number: PHHY2010US64464

PATIENT
  Age: 11 Year
  Sex: Female

DRUGS (2)
  1. ILARIS [Suspect]
     Indication: CRYOPYRIN ASSOCIATED PERIODIC SYNDROME
     Route: 058
  2. STEROIDS NOS [Concomitant]

REACTIONS (2)
  - PAPILLOEDEMA [None]
  - SCOTOMA [None]
